FAERS Safety Report 20023507 (Version 1)
Quarter: 2021Q4

REPORT INFORMATION
  Report Type: Spontaneous
  Country: FR (occurrence: FR)
  Receive Date: 20211102
  Receipt Date: 20211102
  Transmission Date: 20220304
  Serious: Yes (Hospitalization, Other)
  Sender: FDA-Public Use
  Company Number: FR-MYLANLABS-M-EU-2011110227

PATIENT
  Age: 39 Year
  Sex: Female

DRUGS (12)
  1. TRAMADOL [Suspect]
     Active Substance: TRAMADOL
     Indication: Osteitis
     Dosage: UNK
  2. TRAMADOL [Suspect]
     Active Substance: TRAMADOL
     Indication: Osteitis
     Dosage: UNK
  3. NEFOPAM [Suspect]
     Active Substance: NEFOPAM
     Indication: Osteitis
     Dosage: UNK
  4. PREDNISOLONE [Suspect]
     Active Substance: PREDNISOLONE
     Indication: Drug reaction with eosinophilia and systemic symptoms
  5. CEFTRIAXONE [Suspect]
     Active Substance: CEFTRIAXONE
     Indication: Osteitis
     Dosage: UNK
  6. GENTAMICIN [Suspect]
     Active Substance: GENTAMICIN
     Indication: Osteitis
     Dosage: UNK
  7. PREDNISONE [Suspect]
     Active Substance: PREDNISONE
     Indication: Product used for unknown indication
     Dosage: 1 MILLIGRAM/KILOGRAM, QD
     Route: 048
  8. PREDNISONE [Suspect]
     Active Substance: PREDNISONE
     Dosage: 10 MILLIGRAM
  9. PREDNISONE [Suspect]
     Active Substance: PREDNISONE
     Dosage: UNK, 2 BOLUS OF IV PREDNISONE
     Route: 042
  10. PREDNISONE [Suspect]
     Active Substance: PREDNISONE
     Dosage: 30 MILLIGRAM, QD
     Route: 048
  11. NEFOPAM HYDROCHLORIDE [Suspect]
     Active Substance: NEFOPAM HYDROCHLORIDE
     Indication: Osteitis
     Dosage: UNK
  12. VANCOMYCIN [Suspect]
     Active Substance: VANCOMYCIN
     Indication: Osteitis
     Dosage: UNK

REACTIONS (29)
  - Drug reaction with eosinophilia and systemic symptoms [Recovered/Resolved]
  - Human herpesvirus 6 infection reactivation [Recovering/Resolving]
  - Autoimmune thyroiditis [Recovered/Resolved]
  - Hypotension [Recovered/Resolved]
  - Hepatic cytolysis [Recovered/Resolved]
  - Face oedema [Recovered/Resolved]
  - Skin disorder [Recovered/Resolved]
  - Tachycardia [Unknown]
  - Hot flush [Unknown]
  - Amenorrhoea [Unknown]
  - Leukocytosis [Recovered/Resolved]
  - Palpitations [Unknown]
  - Pyrexia [Unknown]
  - Asthenia [Unknown]
  - Motor dysfunction [Unknown]
  - Acute kidney injury [Unknown]
  - Renal tubular disorder [Unknown]
  - Irritability [Unknown]
  - Arthralgia [Not Recovered/Not Resolved]
  - Decreased appetite [Unknown]
  - Jaundice cholestatic [Recovered/Resolved]
  - Myalgia [Unknown]
  - Basedow^s disease [Recovered/Resolved]
  - Chills [Unknown]
  - Lymphadenopathy [Recovered/Resolved]
  - Dermatitis exfoliative generalised [Recovered/Resolved]
  - General physical health deterioration [Recovered/Resolved]
  - Drug eruption [Recovered/Resolved]
  - Eosinophilia [Recovered/Resolved]
